FAERS Safety Report 11278115 (Version 1)
Quarter: 2015Q3

REPORT INFORMATION
  Report Type: Spontaneous
  Country: US (occurrence: US)
  Receive Date: 20150717
  Receipt Date: 20150717
  Transmission Date: 20151125
  Serious: No
  Sender: FDA-Public Use
  Company Number: US-009507513-1507USA006878

PATIENT
  Sex: Female

DRUGS (1)
  1. GRASTEK [Suspect]
     Active Substance: PHLEUM PRATENSE POLLEN
     Dosage: 2800 BAU ONCE DAILY, STRENGTH: 2800 BAU (DF)
     Route: 060

REACTIONS (1)
  - Urticaria [Recovered/Resolved]

NARRATIVE: CASE EVENT DATE: 20150709
